FAERS Safety Report 4775066-X (Version None)
Quarter: 2005Q3

REPORT INFORMATION
  Report Type: 
  Country: None (occurrence: None)
  Receive Date: 20050920
  Receipt Date: 20050909
  Transmission Date: 20060218
  Serious: Yes (Hospitalization)
  Sender: FDA-Public Use
  Company Number: WAES 0502GBR00025

PATIENT
  Age: 73 Year
  Sex: Male

DRUGS (7)
  1. VIOXX [Suspect]
     Indication: NEOPLASM PROPHYLAXIS
     Dosage: 25 MG/DAILY; PO
     Route: 048
     Dates: start: 20020718, end: 20030129
  2. AMLODIPINE BESYLATE [Concomitant]
  3. ASPIRIN [Concomitant]
  4. ATENOLOL [Concomitant]
  5. ATORVASTATIN CALCIUM [Concomitant]
  6. BEBDROFLUMETHIAZIDE [Concomitant]
  7. ISOSORBIDE MONONITRATE [Concomitant]

REACTIONS (10)
  - ATRIAL FIBRILLATION [None]
  - BRAIN MASS [None]
  - BUNDLE BRANCH BLOCK [None]
  - CAROTID ARTERY DISEASE [None]
  - CAROTID ARTERY STENOSIS [None]
  - CEREBRAL INFARCTION [None]
  - CEREBROVASCULAR ACCIDENT [None]
  - HYPERTENSION [None]
  - PETECHIAE [None]
  - VENTRICULAR HYPERTROPHY [None]
